FAERS Safety Report 9157409 (Version 1)
Quarter: 2013Q1

REPORT INFORMATION
  Report Type: Spontaneous
  Country: US (occurrence: None)
  Receive Date: 20130308
  Receipt Date: 20130308
  Transmission Date: 20140127
  Serious: Yes (Other)
  Sender: FDA-Public Use
  Company Number: None

PATIENT
  Sex: Male
  Weight: 68.95 kg

DRUGS (1)
  1. FLUOXETINE [Suspect]
     Dosage: 40MG  ONE QD PO
     Route: 048
     Dates: start: 201301

REACTIONS (4)
  - Product substitution issue [None]
  - Catatonia [None]
  - Feeling abnormal [None]
  - Affective disorder [None]
